FAERS Safety Report 6850073-1 (Version None)
Quarter: 2010Q3

REPORT INFORMATION
  Report Type: 
  Country: None (occurrence: None)
  Receive Date: 20100716
  Receipt Date: 20071119
  Transmission Date: 20110219
  Serious: No
  Sender: FDA-Public Use
  Company Number: US-PFIZER INC-2007086053

PATIENT
  Sex: Female
  Weight: 54.43 kg

DRUGS (5)
  1. CHANTIX [Suspect]
     Indication: EX-TOBACCO USER
     Route: 048
     Dates: start: 20070901
  2. ZOLOFT [Concomitant]
  3. HYDROXYZINE [Concomitant]
  4. DURAGESIC-100 [Concomitant]
  5. PREMPRO [Concomitant]

REACTIONS (5)
  - FEELING COLD [None]
  - HYPERHIDROSIS [None]
  - HYPERVENTILATION [None]
  - MALAISE [None]
  - TONSILLAR DISORDER [None]
